FAERS Safety Report 4414952-7 (Version None)
Quarter: 2004Q3

REPORT INFORMATION
  Report Type: 
  Country: None (occurrence: None)
  Receive Date: 20040803
  Receipt Date: 20040803
  Transmission Date: 20050211
  Serious: Yes (Death)
  Sender: FDA-Public Use
  Company Number: None

PATIENT
  Age: 73 Year
  Sex: Female
  Weight: 77 kg

DRUGS (2)
  1. LOVENOX [Suspect]
     Indication: PULMONARY EMBOLISM
     Dosage: 80 MG BID SQ
     Dates: start: 20040510, end: 20040512
  2. WARFARIN SODIUM [Concomitant]

REACTIONS (8)
  - ABDOMINAL DISTENSION [None]
  - ABDOMINAL HAEMATOMA [None]
  - CARDIO-RESPIRATORY ARREST [None]
  - CHEST PAIN [None]
  - DYSPNOEA [None]
  - HYPOXIA [None]
  - INJECTION SITE HAEMORRHAGE [None]
  - SHOCK [None]
